FAERS Safety Report 5848936-9 (Version None)
Quarter: 2008Q3

REPORT INFORMATION
  Report Type: 
  Country: None (occurrence: None)
  Receive Date: 20080819
  Receipt Date: 20080808
  Transmission Date: 20090109
  Serious: Yes (Hospitalization)
  Sender: FDA-Public Use
  Company Number: PHHO2008DE09706

PATIENT
  Sex: Female
  Weight: 132 kg

DRUGS (1)
  1. GLEEVEC [Suspect]
     Indication: CHRONIC MYELOID LEUKAEMIA
     Dosage: UNK
     Route: 048
     Dates: end: 20080801

REACTIONS (3)
  - DIARRHOEA [None]
  - RENAL FAILURE [None]
  - SKIN ULCER [None]
